FAERS Safety Report 8252796-9 (Version None)
Quarter: 2012Q2

REPORT INFORMATION
  Report Type: 
  Country: None (occurrence: None)
  Receive Date: 20120402
  Receipt Date: 20111219
  Transmission Date: 20120825
  Serious: No
  Sender: FDA-Public Use
  Company Number: US-ABBOTT-11P-163-0886440-00

PATIENT
  Sex: Male
  Weight: 83.99 kg

DRUGS (4)
  1. ANDROGEL [Suspect]
     Indication: BLOOD TESTOSTERONE DECREASED
     Dosage: 1 PACKET, 1 IN 1 DAY
     Route: 061
     Dates: start: 20100101
  2. LIPITOR [Concomitant]
     Indication: BLOOD CHOLESTEROL INCREASED
  3. ANDROGEL [Suspect]
     Dosage: 1 PACKETS, 1 IN 1 DAY
     Route: 061
     Dates: start: 20080101, end: 20100101
  4. MICARDIS [Concomitant]
     Indication: HYPERTENSION

REACTIONS (1)
  - BLOOD TESTOSTERONE DECREASED [None]
